FAERS Safety Report 6969562-4 (Version None)
Quarter: 2010Q3

REPORT INFORMATION
  Report Type: 
  Country: None (occurrence: None)
  Receive Date: 20100907
  Receipt Date: 20100907
  Transmission Date: 20110219
  Serious: No
  Sender: FDA-Public Use
  Company Number: None

PATIENT
  Age: 52 Year
  Sex: Female
  Weight: 81.6475 kg

DRUGS (6)
  1. CITALOPRAM HYDROBROMIDE [Suspect]
     Indication: DEPRESSION
     Dosage: 20MG DAILY PO; DECREASING TO 10,5,3MG
     Route: 048
     Dates: start: 20040203, end: 20040203
  2. CITALOPRAM HYDROBROMIDE [Suspect]
     Indication: INJURY
     Dosage: 20MG DAILY PO; DECREASING TO 10,5,3MG
     Route: 048
     Dates: start: 20040203, end: 20040203
  3. CITALOPRAM HYDROBROMIDE [Suspect]
     Indication: MALAISE
     Dosage: 20MG DAILY PO; DECREASING TO 10,5,3MG
     Route: 048
     Dates: start: 20040203, end: 20040203
  4. CITALOPRAM HYDROBROMIDE [Suspect]
     Indication: DEPRESSION
     Dosage: 20MG DAILY PO; DECREASING TO 10,5,3MG
     Route: 048
     Dates: start: 20100905, end: 20100905
  5. CITALOPRAM HYDROBROMIDE [Suspect]
     Indication: INJURY
     Dosage: 20MG DAILY PO; DECREASING TO 10,5,3MG
     Route: 048
     Dates: start: 20100905, end: 20100905
  6. CITALOPRAM HYDROBROMIDE [Suspect]
     Indication: MALAISE
     Dosage: 20MG DAILY PO; DECREASING TO 10,5,3MG
     Route: 048
     Dates: start: 20100905, end: 20100905

REACTIONS (24)
  - ACTIVITIES OF DAILY LIVING IMPAIRED [None]
  - ANXIETY [None]
  - ARTHRALGIA [None]
  - ASTHENIA [None]
  - BACK PAIN [None]
  - BALANCE DISORDER [None]
  - CONDITION AGGRAVATED [None]
  - CONFUSIONAL STATE [None]
  - DEPRESSION [None]
  - DISTURBANCE IN ATTENTION [None]
  - DIZZINESS [None]
  - DRUG WITHDRAWAL SYNDROME [None]
  - ECONOMIC PROBLEM [None]
  - FORMICATION [None]
  - GROIN PAIN [None]
  - HEADACHE [None]
  - HYPERACUSIS [None]
  - MUSCLE SPASMS [None]
  - MUSCULOSKELETAL STIFFNESS [None]
  - MYALGIA [None]
  - PAIN IN EXTREMITY [None]
  - PHOTOPHOBIA [None]
  - POOR QUALITY SLEEP [None]
  - RESTLESS LEGS SYNDROME [None]
